FAERS Safety Report 24855556 (Version 2)
Quarter: 2025Q1

REPORT INFORMATION
  Report Type: Spontaneous
  Country: US (occurrence: US)
  Receive Date: 20250117
  Receipt Date: 20250210
  Transmission Date: 20250409
  Serious: No
  Sender: ALK-ABELLO
  Company Number: US-ALK-ABELLO A/S-2024AA004875

PATIENT

DRUGS (2)
  1. PHLEUM PRATENSE POLLEN [Suspect]
     Active Substance: PHLEUM PRATENSE POLLEN
     Indication: Product used for unknown indication
     Dates: start: 20220414
  2. ZYRTEC [Concomitant]
     Active Substance: CETIRIZINE HYDROCHLORIDE

REACTIONS (1)
  - Injection site urticaria [Recovered/Resolved]
